FAERS Safety Report 5831856-3 (Version None)
Quarter: 2008Q3

REPORT INFORMATION
  Report Type: 
  Country: None (occurrence: None)
  Receive Date: 20080804
  Receipt Date: 20080731
  Transmission Date: 20090109
  Serious: Yes (Death, Other)
  Sender: FDA-Public Use
  Company Number: TR-BRISTOL-MYERS SQUIBB COMPANY-14279764

PATIENT
  Age: 15 Year
  Sex: Male

DRUGS (6)
  1. AMIKACIN SULFATE [Suspect]
     Indication: ANTIBIOTIC THERAPY
  2. IMIPENEM [Suspect]
     Indication: ANTIBIOTIC THERAPY
  3. CHEMOTHERAPY [Suspect]
     Indication: ACUTE LYMPHOCYTIC LEUKAEMIA
  4. ALBUTEROL [Suspect]
  5. BECLOMETHASONE DIPROPIONATE [Suspect]
     Dosage: NEBULIZED
  6. TPN [Suspect]
     Indication: PARENTERAL NUTRITION
     Route: 051

REACTIONS (6)
  - BRONCHOPULMONARY ASPERGILLOSIS [None]
  - FEBRILE NEUTROPENIA [None]
  - HEPATOSPLENIC CANDIDIASIS [None]
  - NEUTROPENIC COLITIS [None]
  - PULMONARY HAEMORRHAGE [None]
  - STOMATITIS [None]
